FAERS Safety Report 9631766 (Version 2)
Quarter: 2013Q4

REPORT INFORMATION
  Report Type: Spontaneous
  Country: JP (occurrence: JP)
  Receive Date: 20131018
  Receipt Date: 20131029
  Transmission Date: 20140711
  Serious: Yes (Other)
  Sender: FDA-Public Use
  Company Number: JP-JNJFOC-20131007614

PATIENT
  Age: 76 Year
  Sex: Male

DRUGS (2)
  1. RISPERDAL [Suspect]
     Indication: AGITATION
     Route: 048
  2. RISPERDAL [Suspect]
     Indication: INSOMNIA
     Route: 048

REACTIONS (6)
  - Intentional overdose [Unknown]
  - Dehydration [Unknown]
  - Altered state of consciousness [Unknown]
  - Sedation [Unknown]
  - Off label use [Unknown]
  - Pyrexia [Unknown]
